FAERS Safety Report 16392127 (Version 1)
Quarter: 2019Q2

REPORT INFORMATION
  Report Type: Spontaneous
  Country: US (occurrence: US)
  Receive Date: 20190605
  Receipt Date: 20190605
  Transmission Date: 20190711
  Serious: No
  Sender: FDA-Public Use
  Company Number: US-ROCHE-2247501

PATIENT
  Age: 56 Year
  Sex: Male
  Weight: 72.19 kg

DRUGS (1)
  1. OCREVUS [Suspect]
     Active Substance: OCRELIZUMAB
     Indication: RELAPSING-REMITTING MULTIPLE SCLEROSIS
     Dosage: NEXT INFUSION: 14/JAN/2019 AND LAST INFUSION ON 22/JAN/2019
     Route: 042
     Dates: start: 20170730

REACTIONS (5)
  - Peripheral swelling [Recovered/Resolved]
  - Product dose omission [Unknown]
  - Infusion site extravasation [Recovered/Resolved]
  - Infusion related reaction [Unknown]
  - Gait disturbance [Not Recovered/Not Resolved]

NARRATIVE: CASE EVENT DATE: 20190114
